FAERS Safety Report 9365341 (Version 1)
Quarter: 2013Q2

REPORT INFORMATION
  Report Type: Spontaneous
  Country: US (occurrence: US)
  Receive Date: 20130625
  Receipt Date: 20130625
  Transmission Date: 20140414
  Serious: No
  Sender: FDA-Public Use
  Company Number: US-009507513-1306USA007524

PATIENT
  Age: 51 Year
  Sex: Female

DRUGS (4)
  1. CLARINEX-D-12 [Suspect]
     Indication: HYPERSENSITIVITY
     Dosage: 1 DF, BID
     Route: 048
     Dates: start: 2012
  2. OMEGA-3 MARINE TRIGLYCERIDES [Concomitant]
  3. LANSOPRAZOLE [Concomitant]
  4. HYDROCODONE [Concomitant]

REACTIONS (1)
  - Medication residue present [Unknown]
